FAERS Safety Report 8869437 (Version 1)
Quarter: 2012Q4

REPORT INFORMATION
  Report Type: 
  Country: RU (occurrence: RU)
  Receive Date: 20121028
  Receipt Date: 20121028
  Transmission Date: 20130627
  Serious: Yes (Death, Other)
  Sender: FDA-Public Use
  Company Number: RU-BAYER-2012-109723

PATIENT
  Age: 58 Year
  Sex: Female

DRUGS (2)
  1. NEXAVAR [Suspect]
     Indication: CARCINOMA HEPATOCELLULAR
     Dosage: 1DF, QD (1 tablet QD)
     Dates: start: 20120924
  2. NEXAVAR [Suspect]
     Indication: CARCINOMA HEPATOCELLULAR
     Dosage: 2 DF, UNK
     Dates: end: 20121120

REACTIONS (3)
  - Multi-organ failure [Fatal]
  - Ascites [Not Recovered/Not Resolved]
  - Pleurisy [Not Recovered/Not Resolved]
